FAERS Safety Report 5541452-3 (Version None)
Quarter: 2007Q4

REPORT INFORMATION
  Report Type: 
  Country: None (occurrence: None)
  Receive Date: 20071210
  Receipt Date: 20071203
  Transmission Date: 20080405
  Serious: Yes (Death, Life-Threatening, Hospitalization)
  Sender: FDA-Public Use
  Company Number: FR-JNJFOC-20071200610

PATIENT
  Age: 82 Year
  Sex: Female
  Weight: 76 kg

DRUGS (6)
  1. INFLIXIMAB [Suspect]
     Route: 042
  2. INFLIXIMAB [Suspect]
     Route: 042
  3. INFLIXIMAB [Suspect]
     Indication: CROHN'S DISEASE
     Route: 042
  4. RIVASTIGMINE [Concomitant]
     Indication: ISCHAEMIC STROKE
  5. ASPIRIN [Concomitant]
     Indication: ISCHAEMIC STROKE
  6. ENOXAPARIN SODIUM [Concomitant]
     Indication: ISCHAEMIC STROKE

REACTIONS (4)
  - CARDIOGENIC SHOCK [None]
  - ISCHAEMIC STROKE [None]
  - PLEURISY [None]
  - URINARY TRACT INFECTION [None]
